FAERS Safety Report 4399085-0 (Version None)
Quarter: 2004Q2

REPORT INFORMATION
  Report Type: 
  Country: None (occurrence: None)
  Receive Date: 20040621
  Receipt Date: 20031119
  Transmission Date: 20050107
  Serious: Yes (Death)
  Sender: FDA-Public Use
  Company Number: 2012529

PATIENT
  Age: 29 Year
  Sex: Male
  Weight: 131 kg

DRUGS (7)
  1. OXYCONTIN [Suspect]
  2. DIAZEPAM [Suspect]
  3. TEMAZEPAM [Suspect]
  4. ACETAMINOPHEN [Suspect]
  5. FLUOXETINE HYDROCHLORIDE [Suspect]
  6. CANNABINOIDS [Suspect]
  7. VALIUM [Concomitant]

REACTIONS (1)
  - MULTIPLE DRUG OVERDOSE ACCIDENTAL [None]
